FAERS Safety Report 12820726 (Version 1)
Quarter: 2016Q4

REPORT INFORMATION
  Report Type: Report from Study
  Country: CA (occurrence: CA)
  Receive Date: 20161006
  Receipt Date: 20161006
  Transmission Date: 20170207
  Serious: Yes (Hospitalization)
  Sender: FDA-Public Use
  Company Number: CA-JNJFOC-20161002485

PATIENT
  Age: 75 Year
  Sex: Female
  Weight: 50 kg

DRUGS (1)
  1. REMICADE [Suspect]
     Active Substance: INFLIXIMAB
     Indication: CROHN^S DISEASE
     Dosage: 0,2,6 AND THEN 8 WEEKS.
     Route: 042
     Dates: start: 20160630

REACTIONS (2)
  - Enterostomy [Unknown]
  - Intestinal resection [Unknown]

NARRATIVE: CASE EVENT DATE: 20160915
